FAERS Safety Report 7411650-2 (Version None)
Quarter: 2011Q2

REPORT INFORMATION
  Report Type: 
  Country: None (occurrence: None)
  Receive Date: 20110413
  Receipt Date: 20101011
  Transmission Date: 20111010
  Serious: No
  Sender: FDA-Public Use
  Company Number: US-BRISTOL-MYERS SQUIBB COMPANY-15327950

PATIENT
  Age: 95 Year
  Sex: Female
  Weight: 58 kg

DRUGS (8)
  1. NITROGLYCERIN [Concomitant]
  2. ERBITUX [Suspect]
     Dosage: HAD 3 TREATMENTS
     Dates: start: 20100923
  3. METOPROLOL TARTRATE [Concomitant]
  4. ZOCOR [Concomitant]
  5. TORSEMIDE [Concomitant]
  6. ALBUTEROL [Concomitant]
     Dosage: ALBUTEROL NEBS
  7. ASPIRIN [Concomitant]
  8. AMLODIPINE [Concomitant]

REACTIONS (2)
  - ERYTHEMA [None]
  - EYE SWELLING [None]
